FAERS Safety Report 21066003 (Version 4)
Quarter: 2022Q3

REPORT INFORMATION
  Report Type: Spontaneous
  Country: US (occurrence: US)
  Receive Date: 20220711
  Receipt Date: 20220725
  Transmission Date: 20221026
  Serious: No
  Sender: FDA-Public Use
  Company Number: US-PFIZER INC-202200938429

PATIENT
  Age: 48 Year
  Sex: Male
  Weight: 104.33 kg

DRUGS (4)
  1. PRISTIQ EXTENDED-RELEASE [Suspect]
     Active Substance: DESVENLAFAXINE SUCCINATE
     Indication: Anxiety
     Dosage: 25 MG, 1X/DAY
     Dates: start: 202206, end: 202207
  2. PRISTIQ EXTENDED-RELEASE [Suspect]
     Active Substance: DESVENLAFAXINE SUCCINATE
     Indication: Depression
  3. LAMICTAL [Concomitant]
     Active Substance: LAMOTRIGINE
     Dosage: UNK
  4. LAMOTRIGINE [Concomitant]
     Active Substance: LAMOTRIGINE
     Dosage: UNK

REACTIONS (15)
  - Anger [Unknown]
  - Amnesia [Unknown]
  - Speech disorder [Unknown]
  - Stomatitis [Recovered/Resolved]
  - Bladder disorder [Recovered/Resolved]
  - Libido disorder [Recovered/Resolved]
  - Delusion [Unknown]
  - Fatigue [Unknown]
  - Depression [Unknown]
  - Discomfort [Unknown]
  - Vomiting [Unknown]
  - Condition aggravated [Unknown]
  - Increased appetite [Unknown]
  - Emotional disorder [Unknown]
  - Weight increased [Unknown]

NARRATIVE: CASE EVENT DATE: 20220701
